FAERS Safety Report 5346341-5 (Version None)
Quarter: 2007Q2

REPORT INFORMATION
  Report Type: 
  Country: None (occurrence: None)
  Receive Date: 20070430
  Receipt Date: 20070110
  Transmission Date: 20071010
  Serious: No
  Sender: FDA-Public Use
  Company Number: 012737

PATIENT
  Age: 57 Year
  Sex: Female

DRUGS (7)
  1. PRIALT [Suspect]
     Indication: NERVE INJURY
     Dosage: SEE IMAGE
     Route: 037
     Dates: start: 20060501, end: 20060101
  2. PRIALT [Suspect]
     Indication: NERVE INJURY
     Dosage: SEE IMAGE
     Route: 037
     Dates: start: 20060101, end: 20061201
  3. MORPHINE [Concomitant]
  4. CLONIDINE [Concomitant]
  5. MARCAINE /00330101/ (BUPIVACAINE) [Concomitant]
  6. SYNTHROID [Concomitant]
  7. TRAMADOL HCL [Concomitant]

REACTIONS (7)
  - BLISTER [None]
  - BURNING SENSATION [None]
  - DRY SKIN [None]
  - HYPOTRICHOSIS [None]
  - MYALGIA [None]
  - PRURITUS [None]
  - SKIN EXFOLIATION [None]
